FAERS Safety Report 18592239 (Version 1)
Quarter: 2020Q4

REPORT INFORMATION
  Report Type: Report from Study
  Country: None (occurrence: CA)
  Receive Date: 20201209
  Receipt Date: 20201209
  Transmission Date: 20210114
  Serious: Yes (Hospitalization, Other)
  Sender: FDA-Public Use
  Company Number: CA-ABBVIE-20K-028-3677780-00

PATIENT
  Age: 46 Year
  Sex: Female
  Weight: 63.56 kg

DRUGS (6)
  1. LEVOCARB [Concomitant]
     Active Substance: CARBIDOPA\LEVODOPA
     Indication: PARKINSON^S DISEASE
  2. LEVODOPA/CARBIDOPA [Suspect]
     Active Substance: CARBIDOPA\LEVODOPA
     Indication: PARKINSON^S DISEASE
     Dosage: DUODOPA-LEVODOPA20MG/ML,CARBIDOPAMONOHYDRATE5MG/ML
     Route: 050
     Dates: start: 20151117, end: 20201201
  3. LEVODOPA/CARBIDOPA [Suspect]
     Active Substance: CARBIDOPA\LEVODOPA
  4. BISOPROLOL [Concomitant]
     Active Substance: BISOPROLOL
     Indication: PRODUCT USED FOR UNKNOWN INDICATION
  5. NEUPRO [Concomitant]
     Active Substance: ROTIGOTINE
     Indication: PARKINSON^S DISEASE
     Dosage: PATCH
  6. ZARAH [Concomitant]
     Active Substance: DROSPIRENONE\ETHINYL ESTRADIOL
     Indication: CONTRACEPTION

REACTIONS (4)
  - On and off phenomenon [Recovering/Resolving]
  - Speech disorder [Recovering/Resolving]
  - Loss of consciousness [Unknown]
  - Mobility decreased [Recovering/Resolving]

NARRATIVE: CASE EVENT DATE: 20201201
